FAERS Safety Report 22060511 (Version 3)
Quarter: 2023Q1

REPORT INFORMATION
  Report Type: Spontaneous
  Country: US (occurrence: US)
  Receive Date: 20230303
  Receipt Date: 20230308
  Transmission Date: 20230418
  Serious: No
  Sender: FDA-Public Use
  Company Number: US-002147023-NVSC2023US048879

PATIENT
  Sex: Female

DRUGS (1)
  1. LATANOPROST [Suspect]
     Active Substance: LATANOPROST
     Indication: Product used for unknown indication
     Dosage: 0.005 %, QD (ROUTE: EYE DROP) 2.5ML LDP US

REACTIONS (5)
  - Product package associated injury [Unknown]
  - Product container issue [Unknown]
  - Skin laceration [Unknown]
  - Pain in extremity [Unknown]
  - Skin haemorrhage [Unknown]
